FAERS Safety Report 7045299-0 (Version None)
Quarter: 2010Q4

REPORT INFORMATION
  Report Type: 
  Country: None (occurrence: None)
  Receive Date: 20101014
  Receipt Date: 20100712
  Transmission Date: 20110411
  Serious: No
  Sender: FDA-Public Use
  Company Number: US-ALLERGAN-1008954US

PATIENT
  Age: 64 Year
  Sex: Female

DRUGS (4)
  1. LATISSE [Suspect]
     Indication: GROWTH OF EYELASHES
     Dosage: 1 GTT, QHS
     Route: 061
     Dates: start: 20100607, end: 20100710
  2. LATISSE [Suspect]
  3. ZITHROMAX [Concomitant]
     Indication: SINUSITIS
     Dosage: 2 TABS DAY 1, THEN 1 TAB QD
     Route: 048
     Dates: start: 20100601
  4. ZITHROMAX [Concomitant]
     Dosage: UNK

REACTIONS (3)
  - SINUSITIS [None]
  - SKIN DISORDER [None]
  - SKIN HYPERPIGMENTATION [None]
